FAERS Safety Report 7005105-7 (Version None)
Quarter: 2010Q3

REPORT INFORMATION
  Report Type: 
  Country: None (occurrence: None)
  Receive Date: 20100921
  Receipt Date: 20100914
  Transmission Date: 20110219
  Serious: Yes (Other)
  Sender: FDA-Public Use
  Company Number: US-SANOFI-AVENTIS-2010SA055567

PATIENT
  Age: 64 Year
  Sex: Male

DRUGS (2)
  1. LANTUS [Suspect]
     Indication: TYPE 2 DIABETES MELLITUS
     Dosage: TAKEN LANTUS VIA OPTICLIK FOR OVER 3 YEARS. DOSE:40 UNIT(S)
     Route: 058
  2. OPTICLICK [Suspect]
     Dosage: HAD OPTICLIK FOR OVER 3 YEARS.

REACTIONS (2)
  - GLAUCOMA [None]
  - VISION BLURRED [None]
